FAERS Safety Report 7199557-X (Version None)
Quarter: 2010Q4

REPORT INFORMATION
  Report Type: 
  Country: None (occurrence: None)
  Receive Date: 20101228
  Receipt Date: 20101223
  Transmission Date: 20110411
  Serious: Yes (Death)
  Sender: FDA-Public Use
  Company Number: PHHY2009US66588

PATIENT
  Sex: Male
  Weight: 68 kg

DRUGS (5)
  1. EXJADE [Suspect]
     Indication: IRON OVERLOAD
     Dosage: 1500 MG, DAILY
     Route: 048
     Dates: start: 20080923, end: 20090602
  2. LASIX [Concomitant]
     Route: 048
  3. ZOLOFT [Concomitant]
  4. METOPROLOL TARTRATE [Concomitant]
  5. POTASSIUM CHLORIDE [Concomitant]

REACTIONS (4)
  - DEATH [None]
  - DIARRHOEA [None]
  - DRY MOUTH [None]
  - FREQUENT BOWEL MOVEMENTS [None]
